FAERS Safety Report 9472950 (Version 1)
Quarter: 2013Q3

REPORT INFORMATION
  Report Type: Spontaneous
  Country: US (occurrence: US)
  Receive Date: 20130823
  Receipt Date: 20130823
  Transmission Date: 20140515
  Serious: No
  Sender: FDA-Public Use
  Company Number: US-BRISTOL-MYERS SQUIBB COMPANY-17255357

PATIENT
  Sex: Female

DRUGS (2)
  1. SPRYCEL [Suspect]
     Dates: start: 2010
  2. VITAMIN D [Suspect]
     Indication: PHOTOSENSITIVITY REACTION

REACTIONS (1)
  - Rash [Recovered/Resolved]
